FAERS Safety Report 13739067 (Version 1)
Quarter: 2017Q3

REPORT INFORMATION
  Report Type: Report from Study
  Country: US (occurrence: US)
  Receive Date: 20170710
  Receipt Date: 20170710
  Transmission Date: 20171127
  Serious: No
  Sender: FDA-Public Use
  Company Number: US-SAOL THERAPEUTICS-2016SAO00894

PATIENT
  Age: 49 Year
  Sex: Male

DRUGS (13)
  1. BUPIVICAINE [Suspect]
     Active Substance: BUPIVACAINE
     Dosage: 6.792 MG, \DAY
     Route: 037
  2. BUPIVICAINE [Suspect]
     Active Substance: BUPIVACAINE
     Dosage: 10.506 MG, \DAY
     Route: 037
  3. BUPIVICAINE [Suspect]
     Active Substance: BUPIVACAINE
     Dosage: 23.773 MG, \DAY
     Route: 037
     Dates: start: 20160315
  4. DILAUDID [Suspect]
     Active Substance: HYDROMORPHONE HYDROCHLORIDE
     Dosage: 0.499 MG, \DAY
     Route: 037
  5. BACLOFEN. [Suspect]
     Active Substance: BACLOFEN
     Indication: PAIN
     Dosage: UNK
     Route: 037
  6. DILAUDID [Suspect]
     Active Substance: HYDROMORPHONE HYDROCHLORIDE
     Dosage: 1.0016 MG, \DAY
     Route: 037
     Dates: start: 20160315
  7. COMPOUNDED BACLOFEN [Suspect]
     Active Substance: BACLOFEN
     Dosage: 250.41 ?G, \DAY
     Route: 037
     Dates: start: 20160315
  8. COMPOUNDED BACLOFEN [Suspect]
     Active Substance: BACLOFEN
     Dosage: 396.22 ?G, \DAY
     Route: 037
     Dates: start: 20160315
  9. COMPOUNDED BACLOFEN [Suspect]
     Active Substance: BACLOFEN
     Indication: PAIN
     Dosage: 175.09 ?G, \DAY
     Route: 037
  10. BUPIVICAINE [Suspect]
     Active Substance: BUPIVACAINE
     Dosage: 15.024 MG, \DAY
     Route: 037
     Dates: start: 20160315
  11. BACLOFEN. [Suspect]
     Active Substance: BACLOFEN
     Indication: PAIN
     Dosage: 99.89 ?G, \DAY
     Route: 037
  12. DILAUDID [Suspect]
     Active Substance: HYDROMORPHONE HYDROCHLORIDE
     Dosage: 0.700 MG, \DAY
     Route: 037
  13. DILAUDID [Suspect]
     Active Substance: HYDROMORPHONE HYDROCHLORIDE
     Dosage: 1.5849 MG, \DAY
     Route: 037
     Dates: start: 20160315

REACTIONS (5)
  - Vomiting [Recovered/Resolved]
  - Medical device site pain [Recovered/Resolved]
  - Pain [Unknown]
  - Off label use [Unknown]
  - Nausea [Recovered/Resolved]

NARRATIVE: CASE EVENT DATE: 20150806
